FAERS Safety Report 6180210-6 (Version None)
Quarter: 2009Q2

REPORT INFORMATION
  Report Type: 
  Country: None (occurrence: None)
  Receive Date: 20090501
  Receipt Date: 20090420
  Transmission Date: 20091009
  Serious: Yes (Life-Threatening, Hospitalization)
  Sender: FDA-Public Use
  Company Number: 2009AP001609

PATIENT
  Age: 68 Year
  Sex: Male

DRUGS (5)
  1. CITALOPRAM HYDROBROMIDE [Suspect]
     Indication: DEPRESSION
     Dosage: 30 MG; PO;QD
     Route: 048
     Dates: start: 20081124
  2. ACETYLSALICYLIC ACID SRT [Concomitant]
  3. DOXAZOSIN MESYLATE [Concomitant]
  4. LOSARTAN POTASSIUM [Concomitant]
  5. METFORMIN HCL [Concomitant]

REACTIONS (1)
  - PARTIAL SEIZURES [None]
